FAERS Safety Report 8710027 (Version 2)
Quarter: 2012Q4

REPORT INFORMATION
  Report Type: 
  Country: JP (occurrence: JP)
  Receive Date: 20120806
  Receipt Date: 20120910
  Transmission Date: 20130627
  Serious: Yes (Hospitalization)
  Sender: FDA-Public Use
  Company Number: JP-ABBOTT-12P-087-0963793-00

PATIENT
  Age: 61 Year
  Sex: Female

DRUGS (3)
  1. LANSAP 400 [Suspect]
     Indication: HELICOBACTER INFECTION
     Dosage: 0.5 card (0.5 Card, 1 in 1 day)
     Route: 048
     Dates: start: 20120613, end: 20120613
  2. LANSAP 400 [Suspect]
     Indication: HELICOBACTER INFECTION
     Dosage: 0.5 card (0.5 Card, 1 in 1 day)
     Route: 048
     Dates: start: 20120613, end: 20120613
  3. LANSAP 400 [Suspect]
     Indication: HELICOBACTER INFECTION
     Dosage: 0.5 card (0.5 Card, 1 in 1 day)
     Route: 048
     Dates: start: 20120613, end: 20120613

REACTIONS (9)
  - Convulsion [Recovered/Resolved]
  - Pruritus generalised [Recovered/Resolved]
  - Rash [Recovered/Resolved]
  - Oedema peripheral [Recovered/Resolved]
  - Pyrexia [Recovered/Resolved]
  - Loss of consciousness [None]
  - Hypersensitivity [None]
  - Laceration [None]
  - Lymphocyte transformation test positive [None]
